FAERS Safety Report 4414170-2 (Version None)
Quarter: 2004Q3

REPORT INFORMATION
  Report Type: 
  Country: None (occurrence: None)
  Receive Date: 20040803
  Receipt Date: 20040726
  Transmission Date: 20050211
  Serious: Yes (Other)
  Sender: FDA-Public Use
  Company Number: PHNU2004DE02654

PATIENT
  Age: 45 Year
  Sex: Male

DRUGS (3)
  1. SANDIMMUNE [Suspect]
     Indication: HEART TRANSPLANT
     Dosage: 75MG/DAY
     Dates: start: 20030611
  2. RAPAMUNE [Suspect]
     Indication: IMMUNOSUPPRESSION
     Dosage: 2MG/DAY
     Dates: start: 20040201
  3. SORTIS [Suspect]
     Indication: BLOOD CHOLESTEROL INCREASED
     Dosage: 20MG/DAY
     Dates: start: 20040401, end: 20040601

REACTIONS (5)
  - BLOOD CHOLESTEROL INCREASED [None]
  - BLOOD CREATINE PHOSPHOKINASE INCREASED [None]
  - BLOOD TRIGLYCERIDES INCREASED [None]
  - DRUG INTERACTION [None]
  - DRUG LEVEL DECREASED [None]
